FAERS Safety Report 7034882-4 (Version None)
Quarter: 2010Q4

REPORT INFORMATION
  Report Type: 
  Country: None (occurrence: None)
  Receive Date: 20101008
  Receipt Date: 20101006
  Transmission Date: 20110411
  Serious: No
  Sender: FDA-Public Use
  Company Number: US-PFIZER INC-2010127526

PATIENT
  Sex: Female

DRUGS (1)
  1. AMLODIPINE BESYLATE [Suspect]

REACTIONS (1)
  - OEDEMA PERIPHERAL [None]
